FAERS Safety Report 6060003-0 (Version None)
Quarter: 2009Q1

REPORT INFORMATION
  Report Type: 
  Country: None (occurrence: None)
  Receive Date: 20090130
  Receipt Date: 20090122
  Transmission Date: 20090719
  Serious: Yes (Hospitalization)
  Sender: FDA-Public Use
  Company Number: US-GENENTECH-271661

PATIENT
  Sex: Male
  Weight: 78.912 kg

DRUGS (4)
  1. AVASTIN [Suspect]
     Indication: COLORECTAL CANCER
     Dosage: 439 MG, Q2W
     Route: 042
     Dates: start: 20081013, end: 20081117
  2. FLUOROURACIL [Concomitant]
     Indication: DRUG USE FOR UNKNOWN INDICATION
     Dosage: UNK
     Dates: start: 20081013
  3. IRINOTECAN HCL [Concomitant]
     Indication: DRUG USE FOR UNKNOWN INDICATION
     Dosage: 360 MG, UNK
  4. PREMEDICATION DRUGS [Concomitant]
     Indication: PREMEDICATION

REACTIONS (1)
  - GASTRIC ULCER [None]
